FAERS Safety Report 5580171-4 (Version None)
Quarter: 2008Q1

REPORT INFORMATION
  Report Type: 
  Country: None (occurrence: None)
  Receive Date: 20080103
  Receipt Date: 20071220
  Transmission Date: 20080703
  Serious: Yes (Hospitalization)
  Sender: FDA-Public Use
  Company Number: US-TYCO HEALTHCARE/MALLINCKRODT-T200701596

PATIENT

DRUGS (1)
  1. LIQUID BAROSPERSE [Suspect]
     Indication: X-RAY WITH CONTRAST UPPER GASTROINTESTINAL TRACT
     Dosage: 50 ML, SINGLE
     Route: 050

REACTIONS (17)
  - ABDOMINAL HERNIA REPAIR [None]
  - ABDOMINAL PAIN [None]
  - ABSCESS [None]
  - ANGINA UNSTABLE [None]
  - CHILLS [None]
  - DEEP VEIN THROMBOSIS [None]
  - DUODENAL PERFORATION [None]
  - EXTRAVASATION [None]
  - LEUKOCYTOSIS [None]
  - MASS [None]
  - MYALGIA [None]
  - MYOCARDIAL INFARCTION [None]
  - PROCEDURAL COMPLICATION [None]
  - PULMONARY EMBOLISM [None]
  - PYREXIA [None]
  - SMALL INTESTINAL OBSTRUCTION [None]
  - THROMBOPHLEBITIS [None]
